FAERS Safety Report 10948053 (Version 1)
Quarter: 2015Q1

REPORT INFORMATION
  Report Type: Spontaneous
  Country: US (occurrence: US)
  Receive Date: 20150324
  Receipt Date: 20150324
  Transmission Date: 20150721
  Serious: Yes (Death, Other)
  Sender: FDA-Public Use
  Company Number: US-CIPLA LTD.-2015US02231

PATIENT

DRUGS (5)
  1. CITALOPRAM [Suspect]
     Active Substance: CITALOPRAM HYDROBROMIDE
  2. TRAZODONE [Suspect]
     Active Substance: TRAZODONE HYDROCHLORIDE
  3. CHLORPROMAZINE [Suspect]
     Active Substance: CHLORPROMAZINE
  4. MORPHINE [Suspect]
     Active Substance: MORPHINE
     Dosage: 44 NG/ML IN BLOOD
  5. QUETIAPINE [Suspect]
     Active Substance: QUETIAPINE

REACTIONS (3)
  - Respiratory arrest [Unknown]
  - Drug abuse [Fatal]
  - Cardiac arrest [Unknown]
